FAERS Safety Report 16947910 (Version 1)
Quarter: 2019Q4

REPORT INFORMATION
  Report Type: Spontaneous
  Country: US (occurrence: US)
  Receive Date: 20191022
  Receipt Date: 20191022
  Transmission Date: 20200122
  Serious: No
  Sender: FDA-Public Use
  Company Number: US-ROCHE-2305641

PATIENT
  Age: 49 Year
  Sex: Male

DRUGS (3)
  1. IPILIMUMAB [Concomitant]
     Active Substance: IPILIMUMAB
  2. VEMURAFENIB. [Suspect]
     Active Substance: VEMURAFENIB
     Indication: METASTATIC MALIGNANT MELANOMA
     Route: 065
  3. VEMURAFENIB. [Suspect]
     Active Substance: VEMURAFENIB
     Indication: BRAF V600E MUTATION POSITIVE

REACTIONS (3)
  - Rash morbilliform [Recovered/Resolved]
  - Hyperkeratosis [Unknown]
  - Melanocytic naevus [Unknown]
